FAERS Safety Report 4406326-X (Version None)
Quarter: 2004Q3

REPORT INFORMATION
  Report Type: 
  Country: None (occurrence: None)
  Receive Date: 20040723
  Receipt Date: 20030623
  Transmission Date: 20050211
  Serious: No
  Sender: FDA-Public Use
  Company Number: US-GLAXOSMITHKLINE-A0413548A

PATIENT
  Age: 68 Year
  Sex: Female

DRUGS (4)
  1. AVANDIA [Suspect]
     Route: 048
     Dates: start: 20030620
  2. GLYBURIDE [Concomitant]
  3. LORAZEPAM [Concomitant]
  4. IRON TABLETS [Concomitant]

REACTIONS (5)
  - BLOOD GLUCOSE INCREASED [None]
  - FATIGUE [None]
  - HEADACHE [None]
  - MUSCLE CRAMP [None]
  - NAUSEA [None]
